FAERS Safety Report 8220205-1 (Version None)
Quarter: 2012Q1

REPORT INFORMATION
  Report Type: 
  Country: None (occurrence: None)
  Receive Date: 20120320
  Receipt Date: 20120314
  Transmission Date: 20120608
  Serious: Yes (Hospitalization)
  Sender: FDA-Public Use
  Company Number: GB-BAYER-2012-011934

PATIENT
  Age: 65 Year
  Sex: Male
  Weight: 95 kg

DRUGS (10)
  1. NEXAVAR [Suspect]
     Indication: HEPATIC NEOPLASM MALIGNANT
     Dosage: 600 MG, QD
     Route: 048
     Dates: start: 20111121, end: 20111126
  2. SPIRONOLACTONE [Concomitant]
  3. DOXAZOSIN MESYLATE [Concomitant]
  4. NEXAVAR [Suspect]
     Dosage: 200 MG, QD
     Route: 048
     Dates: start: 20120109, end: 20120114
  5. AMLODIPINE [Concomitant]
  6. GLICLAZIDE [Concomitant]
  7. LACTULOSE [Concomitant]
  8. E45 [Concomitant]
  9. FUROSEMIDE [Concomitant]
  10. RAMIPRIL [Concomitant]

REACTIONS (1)
  - CONFUSIONAL STATE [None]
